FAERS Safety Report 9911919 (Version 2)
Quarter: 2014Q1

REPORT INFORMATION
  Report Type: Spontaneous
  Country: US (occurrence: US)
  Receive Date: 20140219
  Receipt Date: 20140219
  Transmission Date: 20141002
  Serious: No
  Sender: FDA-Public Use
  Company Number: US-MYLANLABS-2013S1019233

PATIENT
  Sex: 0

DRUGS (1)
  1. EPIPEN [Suspect]
     Indication: ALLERGY TO ARTHROPOD STING
     Dosage: UNK

REACTIONS (2)
  - Drug ineffective [Unknown]
  - Myalgia [Unknown]
